FAERS Safety Report 5211616-7 (Version None)
Quarter: 2007Q1

REPORT INFORMATION
  Report Type: 
  Country: None (occurrence: None)
  Receive Date: 20070116
  Receipt Date: 20070116
  Transmission Date: 20070707
  Serious: Yes (Other)
  Sender: FDA-Public Use
  Company Number: None

PATIENT
  Age: 28 Year
  Sex: Female
  Weight: 72.5755 kg

DRUGS (2)
  1. PHENTERMINE [Suspect]
     Indication: METABOLIC DISORDER
     Dosage: 1TAB  DAILY
  2. PHENTERMINE [Suspect]
     Indication: WEIGHT CONTROL
     Dosage: 1TAB  DAILY

REACTIONS (1)
  - SYNCOPE [None]
